FAERS Safety Report 8602232-5 (Version None)
Quarter: 2012Q3

REPORT INFORMATION
  Report Type: 
  Country: None (occurrence: None)
  Receive Date: 20120817
  Receipt Date: 20120813
  Transmission Date: 20120928
  Serious: Yes (Death)
  Sender: FDA-Public Use
  Company Number: BR-PFIZER INC-2012043457

PATIENT
  Age: 86 Year
  Sex: Female
  Weight: 55 kg

DRUGS (2)
  1. SUTENT [Suspect]
     Indication: METASTATIC RENAL CELL CARCINOMA
     Dosage: 50 MG, DAILY, CYCLE 4 PER 2
     Route: 048
     Dates: start: 20111229
  2. SUTENT [Suspect]
     Dosage: 37.5 MG, 1X/DAY CYCLE 4 PER 2
     Route: 048
     Dates: start: 20120105

REACTIONS (7)
  - DEATH [None]
  - HYPERKERATOSIS [None]
  - DECREASED APPETITE [None]
  - DRY SKIN [None]
  - ASTHENIA [None]
  - AGEUSIA [None]
  - FEELING ABNORMAL [None]
